FAERS Safety Report 26190712 (Version 1)
Quarter: 2025Q4

REPORT INFORMATION
  Report Type: Spontaneous
  Country: JP (occurrence: JP)
  Receive Date: 20251223
  Receipt Date: 20251223
  Transmission Date: 20260117
  Serious: Yes (Other)
  Sender: RANBAXY
  Company Number: JP-SUN PHARMACEUTICAL INDUSTRIES LTD-2025RR-542740

PATIENT
  Age: 37 Year
  Sex: Female

DRUGS (4)
  1. CELECOXIB [Suspect]
     Active Substance: CELECOXIB
     Indication: Abdominal pain
     Dosage: 400 MILLIGRAM, DAILY
     Route: 065
  2. ACETAMINOPHEN [Suspect]
     Active Substance: ACETAMINOPHEN
     Indication: Abdominal pain
     Dosage: 4000 MILLIGRAM, DAILY
     Route: 065
  3. RITODRINE [Suspect]
     Active Substance: RITODRINE
     Indication: Abdominal pain
     Dosage: 200 MCG/MIN
     Route: 042
  4. RITODRINE [Suspect]
     Active Substance: RITODRINE
     Dosage: 200 MCG/MIN
     Route: 042

REACTIONS (3)
  - Therapeutic product effect incomplete [Recovered/Resolved]
  - Exposure during pregnancy [Unknown]
  - Premature delivery [Unknown]
